FAERS Safety Report 9457823 (Version 1)
Quarter: 2013Q3

REPORT INFORMATION
  Report Type: Spontaneous
  Country: DE (occurrence: None)
  Receive Date: 20130812
  Receipt Date: 20130812
  Transmission Date: 20140515
  Serious: Yes (Hospitalization, Other)
  Sender: FDA-Public Use
  Company Number: GER/GER/13/003388

PATIENT
  Age: 1 Day
  Sex: Male
  Weight: 3.44 kg

DRUGS (1)
  1. FLUOXETINE (FLUOXETINE) [Suspect]
     Indication: PRODUCT USED FOR UNKNOWN INDICATION
     Dosage: 1 IN 1 D
     Route: 064
     Dates: start: 20080122, end: 20081014

REACTIONS (5)
  - Drug withdrawal syndrome neonatal [None]
  - Oxygen saturation decreased [None]
  - Foetal exposure during pregnancy [None]
  - Posture abnormal [None]
  - Cyanosis [None]
